FAERS Safety Report 5381654-2 (Version None)
Quarter: 2007Q3

REPORT INFORMATION
  Report Type: 
  Country: None (occurrence: None)
  Receive Date: 20070709
  Receipt Date: 20070702
  Transmission Date: 20080115
  Serious: Yes (Hospitalization)
  Sender: FDA-Public Use
  Company Number: PHEH2007US09480

PATIENT
  Age: 71 Year
  Sex: Female

DRUGS (8)
  1. EFFEXOR /USA/ [Suspect]
     Indication: DEPRESSION
     Dosage: 37.5 MG, QD
     Route: 048
     Dates: start: 20070401
  2. EFFEXOR /USA/ [Suspect]
     Dosage: 112.5 MG, QD
     Route: 048
  3. EFFEXOR /USA/ [Suspect]
     Dosage: 150 MG, QD
     Route: 048
  4. NORVASC [Concomitant]
     Indication: HYPERTENSION
     Dates: start: 19990101
  5. TRILEPTAL [Suspect]
     Dates: end: 20070601
  6. INDERAL [Concomitant]
     Indication: HYPERTENSION
     Dosage: 20 MG, QD
     Route: 048
     Dates: start: 19990101
  7. LISINOPRIL [Concomitant]
     Indication: HYPERTENSION
  8. ATIVAN [Concomitant]
     Dosage: 4.5 MG, QD
     Route: 048

REACTIONS (2)
  - BLOOD SODIUM DECREASED [None]
  - DEPRESSION [None]
